FAERS Safety Report 13917058 (Version 3)
Quarter: 2017Q4

REPORT INFORMATION
  Report Type: Spontaneous
  Country: US (occurrence: US)
  Receive Date: 20170829
  Receipt Date: 20171011
  Transmission Date: 20180320
  Serious: No
  Sender: FDA-Public Use
  Company Number: PHEH2017US026899

PATIENT
  Sex: Female

DRUGS (2)
  1. ESTRADIOL. [Suspect]
     Active Substance: ESTRADIOL
     Indication: PRODUCT USED FOR UNKNOWN INDICATION
     Dosage: 0.075 MG (NOT QUITE CLEAR ON DOSAGE), ONE EVERY 3 AND HALF DAYS
     Route: 062
  2. ESTRADIOL. [Suspect]
     Active Substance: ESTRADIOL
     Dosage: 0.05MG/24 HOURS
     Route: 062

REACTIONS (3)
  - Application site reaction [Unknown]
  - Pruritus [Unknown]
  - Wrong technique in product usage process [Unknown]
